FAERS Safety Report 19115759 (Version 1)
Quarter: 2021Q2

REPORT INFORMATION
  Report Type: Spontaneous
  Country: US (occurrence: US)
  Receive Date: 20210409
  Receipt Date: 20210409
  Transmission Date: 20210717
  Serious: Yes (Other)
  Sender: FDA-Public Use
  Company Number: US-BAUSCH-BL-2021-011333

PATIENT
  Age: 76 Year
  Sex: Female
  Weight: 68.04 kg

DRUGS (6)
  1. PRIMIDONE. [Suspect]
     Active Substance: PRIMIDONE
     Indication: TREMOR
     Route: 048
  2. GABAPENTIN. [Concomitant]
     Active Substance: GABAPENTIN
     Indication: PRODUCT USED FOR UNKNOWN INDICATION
     Dates: start: 20210202
  3. PRAMIPEXOLE. [Concomitant]
     Active Substance: PRAMIPEXOLE
     Indication: PRODUCT USED FOR UNKNOWN INDICATION
     Dosage: STARTED IN 1970^S. 1 TABLET IN THE MORNING AND 1 AT NIGHT
  4. LIBRIUM [Suspect]
     Active Substance: CHLORDIAZEPOXIDE HYDROCHLORIDE
     Indication: NEURALGIA
     Route: 065
  5. MYSOLINE [Suspect]
     Active Substance: PRIMIDONE
     Indication: TREMOR
     Dosage: 1970S OR LATE 1960S
     Route: 048
  6. ZONISAMIDE. [Concomitant]
     Active Substance: ZONISAMIDE
     Indication: PRODUCT USED FOR UNKNOWN INDICATION
     Dates: start: 20210218, end: 20210304

REACTIONS (1)
  - Seizure [Unknown]
